FAERS Safety Report 4686260-0 (Version None)
Quarter: 2005Q2

REPORT INFORMATION
  Report Type: 
  Country: None (occurrence: None)
  Receive Date: 20050609
  Receipt Date: 20050523
  Transmission Date: 20051028
  Serious: Yes (Hospitalization)
  Sender: FDA-Public Use
  Company Number: JP-GLAXOSMITHKLINE-B0382517A

PATIENT
  Age: 38 Year
  Sex: Male

DRUGS (5)
  1. PAXIL [Suspect]
     Indication: DEPRESSION
     Dosage: 20MG PER DAY
     Route: 048
     Dates: start: 20050519, end: 20050522
  2. AMOXAN [Suspect]
     Route: 048
  3. LUDIOMIL [Concomitant]
     Route: 048
  4. CORTRIL [Concomitant]
     Route: 048
  5. THYRADIN S [Concomitant]
     Route: 048

REACTIONS (1)
  - NEUROLEPTIC MALIGNANT SYNDROME [None]
